FAERS Safety Report 5696546-9 (Version None)
Quarter: 2008Q2

REPORT INFORMATION
  Report Type: 
  Country: None (occurrence: None)
  Receive Date: 20080404
  Receipt Date: 20080404
  Transmission Date: 20081010
  Serious: No
  Sender: FDA-Public Use
  Company Number: None

PATIENT
  Sex: Male
  Weight: 98.8842 kg

DRUGS (2)
  1. SINGULAIR [Suspect]
     Indication: ASTHMA
     Dosage: 5 MG  BID  INJ
     Dates: start: 20000422, end: 20080330
  2. SINGULAIR [Suspect]
     Indication: MULTIPLE ALLERGIES
     Dosage: 5 MG  BID  INJ
     Dates: start: 20000422, end: 20080330

REACTIONS (3)
  - AFFECT LABILITY [None]
  - AGGRESSION [None]
  - AGITATION [None]
